FAERS Safety Report 23914792 (Version 4)
Quarter: 2025Q2

REPORT INFORMATION
  Report Type: Spontaneous
  Country: CA (occurrence: CA)
  Receive Date: 20240529
  Receipt Date: 20250609
  Transmission Date: 20250716
  Serious: Yes (Other)
  Sender: PFIZER
  Company Number: CA-PFIZER INC-202400179824

PATIENT
  Age: 63 Year
  Sex: Female

DRUGS (31)
  1. RUXIENCE [Suspect]
     Active Substance: RITUXIMAB-PVVR
     Indication: Cryoglobulinaemia
     Route: 042
     Dates: start: 20211012, end: 20211019
  2. RUXIENCE [Suspect]
     Active Substance: RITUXIMAB-PVVR
     Route: 042
     Dates: start: 20220411, end: 20221121
  3. RUXIENCE [Suspect]
     Active Substance: RITUXIMAB-PVVR
     Route: 042
     Dates: start: 20230523
  4. RUXIENCE [Suspect]
     Active Substance: RITUXIMAB-PVVR
     Route: 042
     Dates: start: 20231127
  5. RUXIENCE [Suspect]
     Active Substance: RITUXIMAB-PVVR
     Route: 042
     Dates: start: 20240531
  6. RUXIENCE [Suspect]
     Active Substance: RITUXIMAB-PVVR
     Route: 042
     Dates: start: 20250604
  7. ADVAIR HFA [Concomitant]
     Active Substance: FLUTICASONE PROPIONATE\SALMETEROL XINAFOATE
  8. ALENDRONATE [Concomitant]
     Active Substance: ALENDRONATE SODIUM
  9. BISOPROLOL [Concomitant]
     Active Substance: BISOPROLOL
  10. CALCIUM [Concomitant]
     Active Substance: CALCIUM
  11. CORTEF [Concomitant]
     Active Substance: HYDROCORTISONE
  12. CYCLOSPORINE [Concomitant]
     Active Substance: CYCLOSPORINE
     Route: 065
  13. CHOLECALCIFEROL [Concomitant]
     Active Substance: CHOLECALCIFEROL
  14. ESCITALOPRAM [Concomitant]
     Active Substance: ESCITALOPRAM OXALATE
  15. ENTRESTO [Concomitant]
     Active Substance: SACUBITRIL\VALSARTAN
  16. FOLIC ACID [Concomitant]
     Active Substance: FOLIC ACID
  17. LEVETIRACETAM [Concomitant]
     Active Substance: LEVETIRACETAM
  18. LOTEMAX [Concomitant]
     Active Substance: LOTEPREDNOL ETABONATE
  19. METHOTREXATE [Concomitant]
     Active Substance: METHOTREXATE
     Dosage: 25 MG, WEEKLY
     Route: 048
     Dates: start: 20210217
  20. NORITATE [Concomitant]
     Active Substance: METRONIDAZOLE
  21. PANTOPRAZOLE [Concomitant]
     Active Substance: PANTOPRAZOLE
  22. HYDROXYCHLOROQUINE DIPHOSPHATE [Concomitant]
     Active Substance: HYDROXYCHLOROQUINE DIPHOSPHATE
     Route: 065
     Dates: start: 2008
  23. PREDNISONE [Concomitant]
     Active Substance: PREDNISONE
  24. PREGABALIN [Concomitant]
     Active Substance: PREGABALIN
  25. PREGABALIN [Concomitant]
     Active Substance: PREGABALIN
  26. RESTASIS [Concomitant]
     Active Substance: CYCLOSPORINE
  27. ALBUTEROL [Concomitant]
     Active Substance: ALBUTEROL
  28. SANDIMMUNE [Concomitant]
     Active Substance: CYCLOSPORINE
     Route: 065
  29. SPIRONOLACTONE [Concomitant]
     Active Substance: SPIRONOLACTONE
  30. SULFATRIM [Concomitant]
     Active Substance: SULFAMETHOXAZOLE\TRIMETHOPRIM
  31. FERROUS SULFATE [Concomitant]
     Active Substance: FERROUS SULFATE

REACTIONS (1)
  - Cataract [Recovering/Resolving]
